FAERS Safety Report 9526506 (Version 2)
Quarter: 2013Q3

REPORT INFORMATION
  Report Type: Spontaneous
  Country: US (occurrence: US)
  Receive Date: 20130916
  Receipt Date: 20130923
  Transmission Date: 20140515
  Serious: Yes (Death, Other)
  Sender: FDA-Public Use
  Company Number: US-GILEAD-2013-0083395

PATIENT
  Sex: Female

DRUGS (1)
  1. LETAIRIS [Suspect]
     Indication: IDIOPATHIC PULMONARY FIBROSIS
     Dosage: 5 MG, UNK
     Route: 048
     Dates: start: 201308

REACTIONS (3)
  - Respiratory failure [Fatal]
  - Pulmonary hypertension [Fatal]
  - Pulmonary fibrosis [Fatal]
